FAERS Safety Report 4707306-7 (Version None)
Quarter: 2005Q3

REPORT INFORMATION
  Report Type: 
  Country: None (occurrence: None)
  Receive Date: 20050701
  Receipt Date: 20050616
  Transmission Date: 20060218
  Serious: Yes (Life-Threatening, Hospitalization)
  Sender: FDA-Public Use
  Company Number: WAES 0410BRA00332

PATIENT
  Age: 74 Year
  Sex: Female

DRUGS (1)
  1. VIOXX [Suspect]
     Indication: RHEUMATOID ARTHRITIS
     Dosage: 1 MG/DAILY/PO
     Route: 048
     Dates: start: 20040504, end: 20040727

REACTIONS (3)
  - ARTERIAL CATHETERISATION ABNORMAL [None]
  - CORONARY ARTERY INSUFFICIENCY [None]
  - VENTRICULAR HYPOKINESIA [None]
